FAERS Safety Report 9808282 (Version 3)
Quarter: 2014Q2

REPORT INFORMATION
  Report Type: Spontaneous
  Country: US (occurrence: None)
  Receive Date: 20140108
  Receipt Date: 20140605
  Transmission Date: 20141212
  Serious: Yes (Hospitalization)
  Sender: FDA-Public Use
  Company Number: 2013-23594

PATIENT
  Age: 58 Year
  Sex: Male

DRUGS (3)
  1. IMIQUIMOD [Suspect]
     Indication: ACTINIC KERATOSIS
     Dosage: ONE APPLICATION DAILY
     Route: 061
     Dates: start: 20131209, end: 20140120
  2. ZYCLARA [Suspect]
     Indication: ACTINIC KERATOSIS
     Dosage: ONE APPLICATION DAILY
     Route: 061
     Dates: start: 20131209, end: 20140120
  3. PLACEBO [Suspect]
     Indication: ACTINIC KERATOSIS
     Dosage: ONE APPLICATION DAILY
     Route: 061
     Dates: start: 20131209, end: 20140120

REACTIONS (2)
  - Pneumonia [None]
  - Pulmonary embolism [None]
